FAERS Safety Report 5471515-2 (Version None)
Quarter: 2007Q3

REPORT INFORMATION
  Report Type: 
  Country: None (occurrence: None)
  Receive Date: 20070928
  Receipt Date: 20061207
  Transmission Date: 20080115
  Serious: No
  Sender: FDA-Public Use
  Company Number: US-BRISTOL-MYERS SQUIBB COMPANY-13606140

PATIENT
  Age: 62 Year
  Sex: Male

DRUGS (1)
  1. DEFINITY [Suspect]
     Indication: ECHOCARDIOGRAM
     Dosage: 1.3CC DEFINITY/8.7CC NORMAL SALINE SOLUTION-3 CC GIVEN

REACTIONS (3)
  - HAEMOPTYSIS [None]
  - LOSS OF CONSCIOUSNESS [None]
  - RESPIRATORY DISTRESS [None]
